FAERS Safety Report 5992515-X (Version None)
Quarter: 2008Q4

REPORT INFORMATION
  Report Type: 
  Country: None (occurrence: None)
  Receive Date: 20081211
  Receipt Date: 20080520
  Transmission Date: 20090506
  Serious: No
  Sender: FDA-Public Use
  Company Number: US-AMGEN-KDL279067

PATIENT
  Sex: Female

DRUGS (1)
  1. ENBREL [Suspect]
     Indication: ANKYLOSING SPONDYLITIS
     Route: 058
     Dates: start: 20060101

REACTIONS (5)
  - ACNE [None]
  - IMPAIRED HEALING [None]
  - INJECTION SITE HAEMATOMA [None]
  - SKIN LACERATION [None]
  - WEIGHT DECREASED [None]
